APPROVED DRUG PRODUCT: MIRTAZAPINE
Active Ingredient: MIRTAZAPINE
Strength: 15MG
Dosage Form/Route: TABLET, ORALLY DISINTEGRATING;ORAL
Application: A076901 | Product #001
Applicant: IMPAX LABORATORIES INC
Approved: Jun 28, 2005 | RLD: No | RS: No | Type: DISCN